FAERS Safety Report 18330637 (Version 1)
Quarter: 2020Q3

REPORT INFORMATION
  Report Type: Spontaneous
  Country: DE (occurrence: DE)
  Receive Date: 20200930
  Receipt Date: 20200930
  Transmission Date: 20201103
  Serious: Yes (Hospitalization)
  Sender: FDA-Public Use
  Company Number: DE-MYLANLABS-2020M1081800

PATIENT
  Age: 69 Year
  Sex: Female
  Weight: 41 kg

DRUGS (6)
  1. TORASEMIDE [Suspect]
     Active Substance: TORSEMIDE
     Indication: PRODUCT USED FOR UNKNOWN INDICATION
     Dosage: 30 MILLIGRAM(30 MG, 3?0?0?0)
     Route: 048
  2. BERODUAL [Concomitant]
     Active Substance: FENOTEROL HYDROBROMIDE\IPRATROPIUM BROMIDE
     Dosage: UNK(NK ?G, BEI BEDARF)
     Route: 055
  3. PREDNISOLON                        /00016201/ [Concomitant]
     Active Substance: PREDNISOLONE
     Dosage: 5 MILLIGRAM(5 MG, 1?0?0?0)
     Route: 048
  4. IBUPROFEN. [Concomitant]
     Active Substance: IBUPROFEN
     Dosage: UNK(NK MG, BEI BEDARF)
     Route: 048
  5. BECLOMETASONE;FORMOTEROL;GLYCOPYRRONIUM [Concomitant]
     Dosage: UNK(NK ?G, 1?1?1?0)
     Route: 055
  6. BISOPROLOL [Concomitant]
     Active Substance: BISOPROLOL
     Dosage: UNK(NK MG, 1?0?0?0)
     Route: 048

REACTIONS (6)
  - Condition aggravated [Unknown]
  - Fatigue [Unknown]
  - Dyspnoea [Unknown]
  - Acute respiratory failure [Unknown]
  - General physical health deterioration [Unknown]
  - Electrolyte imbalance [Unknown]
